FAERS Safety Report 10696898 (Version 1)
Quarter: 2015Q1

REPORT INFORMATION
  Report Type: Spontaneous
  Country: US (occurrence: US)
  Receive Date: 20150108
  Receipt Date: 20150108
  Transmission Date: 20150721
  Serious: Yes (Other)
  Sender: FDA-Public Use
  Company Number: US-009507513-1501USA000819

PATIENT
  Sex: Male

DRUGS (1)
  1. PROPECIA [Suspect]
     Active Substance: FINASTERIDE
     Indication: ANDROGENETIC ALOPECIA
     Route: 048

REACTIONS (4)
  - Breast cancer [Unknown]
  - Male sexual dysfunction [Unknown]
  - Depression [Unknown]
  - Prostate cancer [Unknown]
